FAERS Safety Report 26140777 (Version 1)
Quarter: 2025Q4

REPORT INFORMATION
  Report Type: Spontaneous
  Country: US (occurrence: US)
  Receive Date: 20251210
  Receipt Date: 20251210
  Transmission Date: 20260117
  Serious: No
  Sender: GLAUKOS
  Company Number: US-GLK-000708

PATIENT

DRUGS (1)
  1. IDOSE TR [Suspect]
     Active Substance: TRAVOPROST
     Indication: Product used for unknown indication
     Route: 047
     Dates: start: 20251119, end: 20251119

REACTIONS (3)
  - Medical device repositioning [Unknown]
  - Hyphaema [Unknown]
  - Device dislocation [Unknown]

NARRATIVE: CASE EVENT DATE: 20251120
